FAERS Safety Report 12820710 (Version 1)
Quarter: 2016Q4

REPORT INFORMATION
  Report Type: Spontaneous
  Country: US (occurrence: US)
  Receive Date: 20161006
  Receipt Date: 20161006
  Transmission Date: 20170207
  Serious: Yes (Hospitalization)
  Sender: FDA-Public Use
  Company Number: US-BIOGEN-2016BI00300484

PATIENT
  Sex: Female

DRUGS (1)
  1. AVONEX [Suspect]
     Active Substance: INTERFERON BETA-1A
     Indication: MULTIPLE SCLEROSIS
     Route: 030

REACTIONS (8)
  - Cardiovascular symptom [Recovered/Resolved]
  - Muscular weakness [Recovered/Resolved]
  - Back pain [Recovered/Resolved]
  - Muscle enzyme increased [Recovered/Resolved]
  - Pericardial effusion [Recovered/Resolved]
  - Myocardial necrosis marker increased [Recovered/Resolved]
  - Hip arthroplasty [Recovered/Resolved]
  - Osteonecrosis [Recovered/Resolved]

NARRATIVE: CASE EVENT DATE: 2009
